FAERS Safety Report 6519778-6 (Version None)
Quarter: 2009Q4

REPORT INFORMATION
  Report Type: 
  Country: None (occurrence: None)
  Receive Date: 20091228
  Receipt Date: 20091228
  Transmission Date: 20100525
  Serious: No
  Sender: FDA-Public Use
  Company Number: None

PATIENT
  Age: 52 Year
  Sex: Male

DRUGS (1)
  1. NATALIZUMAB [Suspect]
     Indication: MULTIPLE SCLEROSIS
     Dosage: 300 MG OTHER IV
     Route: 042
     Dates: start: 20090605, end: 20091008

REACTIONS (4)
  - BACK PAIN [None]
  - CHEST PAIN [None]
  - MYALGIA [None]
  - PAIN [None]
